FAERS Safety Report 15775084 (Version 1)
Quarter: 2018Q4

REPORT INFORMATION
  Report Type: Report from Study
  Country: US (occurrence: US)
  Receive Date: 20181231
  Receipt Date: 20181231
  Transmission Date: 20190205
  Serious: Yes (Other)
  Sender: FDA-Public Use
  Company Number: US-ROCHE-2233972

PATIENT
  Age: 53 Year
  Sex: Female
  Weight: 58.11 kg

DRUGS (8)
  1. AVASTIN [Suspect]
     Active Substance: BEVACIZUMAB
     Dosage: PRE-COURSE SINGLE SHOT WITH FOLFOX:12WEE,ONGOING:N
     Route: 065
  2. GABAPENTIN. [Concomitant]
     Active Substance: GABAPENTIN
  3. AVASTIN [Suspect]
     Active Substance: BEVACIZUMAB
     Indication: COLORECTAL CANCER
     Dosage: ONGOING: UNKNOWN
     Route: 065
     Dates: end: 201605
  4. OXALIPLATIN. [Suspect]
     Active Substance: OXALIPLATIN
     Indication: COLORECTAL CANCER
     Dosage: 12 WEEKS, ONGOING: NO
     Route: 065
     Dates: start: 201605
  5. LORAZEPAM. [Suspect]
     Active Substance: LORAZEPAM
     Indication: ANXIETY
     Dosage: ONLY TOOK ONCE,ONGOING: NO
     Route: 065
  6. FLEXERIL [Suspect]
     Active Substance: CYCLOBENZAPRINE HYDROCHLORIDE
     Indication: ARTHRITIS
     Route: 065
  7. CANNABIS [Concomitant]
     Active Substance: CANNABIS SATIVA SUBSP. INDICA TOP
     Dosage: ONGOING :YES, VARIOUS FORMULATIONS
     Route: 065
  8. OXYCODONE [Concomitant]
     Active Substance: OXYCODONE
     Route: 065

REACTIONS (14)
  - Atrophic vulvovaginitis [Unknown]
  - Arthritis [Unknown]
  - Dry eye [Unknown]
  - Neuralgia [Unknown]
  - Metastases to liver [Unknown]
  - Malignant melanoma [Recovered/Resolved]
  - Neoplasm [Unknown]
  - Calcinosis [Unknown]
  - Bone deformity [Unknown]
  - Multiple sclerosis [Unknown]
  - Tooth loss [Unknown]
  - Weight decreased [Unknown]
  - Anorectal disorder [Not Recovered/Not Resolved]
  - Scoliosis [Unknown]

NARRATIVE: CASE EVENT DATE: 20180307
